FAERS Safety Report 8491904-1 (Version None)
Quarter: 2012Q3

REPORT INFORMATION
  Report Type: 
  Country: None (occurrence: None)
  Receive Date: 20120706
  Receipt Date: 20111207
  Transmission Date: 20120928
  Serious: No
  Sender: FDA-Public Use
  Company Number: US-GLAXOSMITHKLINE-A0957120A

PATIENT
  Sex: Male

DRUGS (3)
  1. THEO-DUR [Concomitant]
  2. ALBUTEROL [Concomitant]
  3. FLOVENT [Suspect]
     Indication: ASTHMA
     Route: 055

REACTIONS (1)
  - DYSPHONIA [None]
